FAERS Safety Report 11817499 (Version 3)
Quarter: 2016Q4

REPORT INFORMATION
  Report Type: Spontaneous
  Country: US (occurrence: US)
  Receive Date: 20151210
  Receipt Date: 20161202
  Transmission Date: 20170206
  Serious: Yes (Hospitalization)
  Sender: FDA-Public Use
  Company Number: US-JNJFOC-20151107546

PATIENT
  Age: 38 Year
  Sex: Male

DRUGS (4)
  1. RISPERDAL [Suspect]
     Active Substance: RISPERIDONE
     Indication: SCHIZOPHRENIA
     Dosage: IN VARYING DOSE OF 1 TO 3 MG
     Route: 048
     Dates: start: 2000, end: 2011
  2. RISPERDAL [Suspect]
     Active Substance: RISPERIDONE
     Indication: DEPRESSION
     Dosage: IN VARYING DOSE OF 1 TO 3 MG
     Route: 048
     Dates: start: 2000, end: 2011
  3. RISPERDAL [Suspect]
     Active Substance: RISPERIDONE
     Indication: SCHIZOAFFECTIVE DISORDER
     Dosage: IN VARYING DOSE OF 1 TO 3 MG
     Route: 048
     Dates: start: 2000, end: 2011
  4. RISPERIDONE. [Suspect]
     Active Substance: RISPERIDONE
     Indication: PRODUCT USED FOR UNKNOWN INDICATION
     Route: 048

REACTIONS (3)
  - Abnormal weight gain [Unknown]
  - Diabetes with hyperosmolarity [Recovering/Resolving]
  - Gynaecomastia [Unknown]

NARRATIVE: CASE EVENT DATE: 200012
